FAERS Safety Report 21803404 (Version 1)
Quarter: 2023Q1

REPORT INFORMATION
  Report Type: Report from Study
  Country: US (occurrence: US)
  Receive Date: 20230101
  Receipt Date: 20230101
  Transmission Date: 20230418
  Serious: Yes (Other)
  Sender: FDA-Public Use
  Company Number: US-ABBVIE-4254012

PATIENT
  Age: 67 Year
  Sex: Male

DRUGS (1)
  1. HUMIRA [Suspect]
     Active Substance: ADALIMUMAB
     Indication: Psoriasis
     Route: 058
     Dates: start: 20220524

REACTIONS (3)
  - Vascular graft [Recovering/Resolving]
  - Unevaluable event [Recovering/Resolving]
  - Lung operation [Recovering/Resolving]

NARRATIVE: CASE EVENT DATE: 20220805
